FAERS Safety Report 20624059 (Version 1)
Quarter: 2022Q1

REPORT INFORMATION
  Report Type: Spontaneous
  Country: PH (occurrence: PH)
  Receive Date: 20220322
  Receipt Date: 20220322
  Transmission Date: 20220424
  Serious: Yes (Hospitalization)
  Sender: FDA-Public Use
  Company Number: PH-BoehringerIngelheim-2022-BI-159557

PATIENT

DRUGS (1)
  1. ALTEPLASE [Suspect]
     Active Substance: ALTEPLASE
     Indication: Product used for unknown indication
     Route: 065

REACTIONS (9)
  - Sepsis [Unknown]
  - COVID-19 [Unknown]
  - Pneumonia [Unknown]
  - Acute kidney injury [Unknown]
  - Pulmonary embolism [Unknown]
  - Gastritis [Unknown]
  - Colitis [Unknown]
  - Pancreatic pseudocyst [Unknown]
  - Gastrointestinal haemorrhage [Unknown]
